FAERS Safety Report 7647899-3 (Version None)
Quarter: 2011Q3

REPORT INFORMATION
  Report Type: 
  Country: None (occurrence: None)
  Receive Date: 20110801
  Receipt Date: 20110609
  Transmission Date: 20111222
  Serious: No
  Sender: FDA-Public Use
  Company Number: US-ABBOTT-11P-163-0804659-00

PATIENT
  Sex: Female
  Weight: 76.363 kg

DRUGS (9)
  1. PANCREATIN TRIPLE STRENGTH CAP [Suspect]
     Indication: CYSTIC FIBROSIS
     Dosage: DAILY DOSE:  UNKNOWN, AS USED: 24000 UNIT, 12 CAPSULES PER DAY
     Route: 065
     Dates: start: 19960101
  2. AZITHROMYCIN [Concomitant]
     Indication: CYSTIC FIBROSIS
     Dosage: DAILY DOSE:  UNKNOWN
     Route: 065
  3. MINOCYCLINE HYDROCHLORIDE [Concomitant]
     Indication: ACNE
     Dosage: DAILY DOSE:  UNKNOWN
     Route: 065
  4. FLUTICASONE PROPIONATE [Concomitant]
     Indication: CYSTIC FIBROSIS
     Dosage: DAILY DOSE:  UNKNOWN
     Route: 065
  5. TOBRAMYCIN [Concomitant]
     Indication: INHALATION THERAPY
     Dosage: DAILY DOSE:  UNKNOWN
     Route: 065
  6. BETAMETHASONE [Concomitant]
     Indication: INHALATION THERAPY
     Dosage: DAILY DOSE:  UNKNOWN
     Route: 065
  7. CETIRIZINE HYDROCHLORIDE [Concomitant]
     Indication: SEASONAL ALLERGY
     Dosage: DAILY DOSE:  UNKNOWN
     Route: 065
  8. ERGOCALCIFEROL [Concomitant]
     Indication: CYSTIC FIBROSIS
     Dosage: DAILY DOSE:  UNKNOWN
     Route: 065
  9. DROSPIRENONE [Concomitant]
     Indication: CONTRACEPTION
     Dosage: DAILY DOSE:  UNKNOWN
     Route: 065

REACTIONS (5)
  - DRUG INEFFECTIVE [None]
  - ABDOMINAL PAIN UPPER [None]
  - DIARRHOEA [None]
  - HUNGER [None]
  - STEATORRHOEA [None]
